FAERS Safety Report 22331645 (Version 21)
Quarter: 2023Q4

REPORT INFORMATION
  Report Type: Report from Study
  Country: CN (occurrence: None)
  Receive Date: 20230517
  Receipt Date: 20231002
  Transmission Date: 20240110
  Serious: Yes (Life-Threatening, Hospitalization)
  Sender: FDA-Public Use
  Company Number: CN-Eisai Medical Research-EC-2023-140355

PATIENT
  Age: 61 Year
  Sex: Male
  Weight: 53 kg

DRUGS (7)
  1. LENVATINIB [Suspect]
     Active Substance: LENVATINIB
     Indication: Adenocarcinoma gastric
     Dosage: STARTING DOSE AT 20 MG, FLUCTUATED DOSAGE
     Route: 048
     Dates: start: 20220315, end: 20230512
  2. LENVATINIB [Suspect]
     Active Substance: LENVATINIB
     Indication: Oesophageal adenocarcinoma
  3. PEMBROLIZUMAB [Suspect]
     Active Substance: PEMBROLIZUMAB
     Indication: Adenocarcinoma gastric
     Route: 041
     Dates: start: 20220315, end: 20230428
  4. PEMBROLIZUMAB [Suspect]
     Active Substance: PEMBROLIZUMAB
     Indication: Oesophageal adenocarcinoma
     Route: 041
     Dates: start: 20230706, end: 20230706
  5. ALLISARTAN ISOPROXIL [Concomitant]
     Active Substance: ALLISARTAN ISOPROXIL
     Dates: start: 20220606, end: 20230512
  6. FELODIPINE [Concomitant]
     Active Substance: FELODIPINE
     Dates: start: 20221021, end: 20230512
  7. SHEN YAN KANG FU [Concomitant]
     Dates: start: 20220407, end: 20230512

REACTIONS (3)
  - Haemorrhage intracranial [Recovering/Resolving]
  - Seizure [Not Recovered/Not Resolved]
  - Malignant neoplasm progression [Not Recovered/Not Resolved]

NARRATIVE: CASE EVENT DATE: 20230512
